FAERS Safety Report 14633139 (Version 13)
Quarter: 2019Q4

REPORT INFORMATION
  Report Type: Spontaneous
  Country: US (occurrence: US)
  Receive Date: 20180313
  Receipt Date: 20191127
  Transmission Date: 20200122
  Serious: Yes (Hospitalization, Other)
  Sender: FDA-Public Use
  Company Number: US-ACTELION-A-NJ2018-168946

PATIENT
  Age: 66 Year
  Sex: Female
  Weight: 52.15 kg

DRUGS (8)
  1. VELETRI [Suspect]
     Active Substance: EPOPROSTENOL
     Dosage: 35 NG/KG, PER MIN
     Route: 042
  2. AMBRISENTAN [Concomitant]
     Active Substance: AMBRISENTAN
  3. EPOPROSTENOL TEVA [Concomitant]
  4. VELETRI [Suspect]
     Active Substance: EPOPROSTENOL
     Dosage: 43 NG/KG, PER MIN
     Route: 042
  5. VELETRI [Suspect]
     Active Substance: EPOPROSTENOL
     Dosage: 43 NG/KG, PER MIN
     Route: 042
  6. TADALAFIL. [Concomitant]
     Active Substance: TADALAFIL
  7. VELETRI [Suspect]
     Active Substance: EPOPROSTENOL
     Indication: PULMONARY ARTERIAL HYPERTENSION
     Dosage: 43 NG/KG, PER MIN
     Route: 042
  8. WARFARIN [Concomitant]
     Active Substance: WARFARIN

REACTIONS (22)
  - Fatigue [Not Recovered/Not Resolved]
  - Insomnia [Not Recovered/Not Resolved]
  - Chest discomfort [Unknown]
  - Sensitive skin [Unknown]
  - Drug titration [Unknown]
  - Device alarm issue [Unknown]
  - Device leakage [Recovered/Resolved]
  - Chest pain [Not Recovered/Not Resolved]
  - Fluid retention [Unknown]
  - Bone disorder [Unknown]
  - Pain [Not Recovered/Not Resolved]
  - Lower limb fracture [Unknown]
  - Pain in jaw [Unknown]
  - Diarrhoea [Unknown]
  - Rheumatoid arthritis [Not Recovered/Not Resolved]
  - Complication associated with device [Unknown]
  - Device connection issue [Recovered/Resolved]
  - Rash [Unknown]
  - Joint range of motion decreased [Unknown]
  - Hospitalisation [Unknown]
  - Knee arthroplasty [Unknown]
  - Device occlusion [Unknown]

NARRATIVE: CASE EVENT DATE: 201803
